FAERS Safety Report 6583626-9 (Version None)
Quarter: 2010Q1

REPORT INFORMATION
  Report Type: 
  Country: None (occurrence: None)
  Receive Date: 20100216
  Receipt Date: 20100203
  Transmission Date: 20100710
  Serious: No
  Sender: FDA-Public Use
  Company Number: JP-PFIZER INC-2010018968

PATIENT
  Age: 36 Year
  Sex: Female

DRUGS (2)
  1. ZOLOFT [Suspect]
     Indication: DEPRESSION
     Dosage: 75 MG, 1X/DAY
     Route: 048
     Dates: start: 20090101
  2. DEPAKENE [Concomitant]

REACTIONS (2)
  - FEELING ABNORMAL [None]
  - MUSCLE SPASMS [None]
